FAERS Safety Report 8634143 (Version 5)
Quarter: 2014Q2

REPORT INFORMATION
  Report Type: Spontaneous
  Country: FR (occurrence: FR)
  Receive Date: 20120626
  Receipt Date: 20140530
  Transmission Date: 20141212
  Serious: Yes (Other)
  Sender: FDA-Public Use
  Company Number: FR-JNJFOC-20120609500

PATIENT
  Age: 63 Year
  Sex: Male
  Weight: 106 kg

DRUGS (3)
  1. STELARA [Suspect]
     Indication: PSORIASIS
     Dosage: TOTALLY, THE PATIENT RECEIVED 3 INJECTIONS
     Route: 058
     Dates: start: 201201
  2. RAMIPRIL [Concomitant]
     Indication: HYPERTENSION
     Dosage: INITIATED SINCE SEVERAL YEARS
     Route: 065
     Dates: start: 201201
  3. NOCTRAN [Concomitant]
     Indication: SLEEP DISORDER
     Dosage: INITIATED SINCE SEVERAL YEARS
     Route: 065
     Dates: start: 201201

REACTIONS (1)
  - Basal cell carcinoma [Recovered/Resolved]
